FAERS Safety Report 4302630-4 (Version None)
Quarter: 2004Q1

REPORT INFORMATION
  Report Type: 
  Country: None (occurrence: None)
  Receive Date: 20040217
  Receipt Date: 20030711
  Transmission Date: 20041129
  Serious: Yes (Other)
  Sender: FDA-Public Use
  Company Number: US-SHR-03-011439

PATIENT
  Age: 58 Year
  Sex: Female
  Weight: 74.8 kg

DRUGS (6)
  1. CLIMARA [Suspect]
     Indication: HORMONE REPLACEMENT THERAPY
     Dosage: 0.025 MG,CONT. TRANSDERMAL
     Route: 062
     Dates: start: 20010701
  2. VERPAMIL [Concomitant]
  3. MULTIVITAMIN [Concomitant]
  4. GLUCOSAMINE [Concomitant]
  5. CALCIUM [Concomitant]
  6. CLA TONALIN [Concomitant]

REACTIONS (3)
  - APPLICATION SITE DERMATITIS [None]
  - CARDIOLIPIN ANTIBODY POSITIVE [None]
  - TRANSIENT ISCHAEMIC ATTACK [None]
